FAERS Safety Report 7348176-0 (Version None)
Quarter: 2011Q1

REPORT INFORMATION
  Report Type: 
  Country: None (occurrence: None)
  Receive Date: 20110311
  Receipt Date: 20110303
  Transmission Date: 20110831
  Serious: Yes (Hospitalization)
  Sender: FDA-Public Use
  Company Number: UG-ABBOTT-11P-165-0709046-00

PATIENT
  Sex: Male

DRUGS (8)
  1. RALTEGRAVIR [Concomitant]
     Indication: HIV INFECTION
     Dates: start: 20110111, end: 20110210
  2. COTRIM [Concomitant]
     Indication: PRODUCT USED FOR UNKNOWN INDICATION
     Dates: start: 20091023
  3. CIPROFLOXACIN [Concomitant]
     Indication: PRODUCT USED FOR UNKNOWN INDICATION
     Dates: start: 20110210, end: 20110215
  4. IBUPROFEN [Concomitant]
     Indication: PRODUCT USED FOR UNKNOWN INDICATION
     Dates: start: 20110210, end: 20110212
  5. ALUVIA TABLETS [Suspect]
     Indication: HIV INFECTION
     Route: 048
     Dates: start: 20110111, end: 20110210
  6. ORAL REHYDRATION SALT [Concomitant]
     Indication: PRODUCT USED FOR UNKNOWN INDICATION
     Dates: start: 20110210, end: 20110213
  7. SODIUM CHLORIDE [Concomitant]
     Indication: PRODUCT USED FOR UNKNOWN INDICATION
     Dates: start: 20110210, end: 20110211
  8. PARACETAMOL [Concomitant]
     Indication: PRODUCT USED FOR UNKNOWN INDICATION
     Dates: start: 20110208, end: 20110210

REACTIONS (4)
  - HYPOTENSION [None]
  - BRONCHOPNEUMONIA [None]
  - HEPATITIS [None]
  - SEPSIS [None]
